FAERS Safety Report 5114914-0 (Version None)
Quarter: 2006Q3

REPORT INFORMATION
  Report Type: 
  Country: None (occurrence: None)
  Receive Date: 20060926
  Receipt Date: 20060918
  Transmission Date: 20061208
  Serious: Yes (Life-Threatening)
  Sender: FDA-Public Use
  Company Number: AU-BRACCO-BRO-010597

PATIENT
  Sex: Female

DRUGS (1)
  1. ISOVUE-128 [Suspect]
     Dosage: 3 ML/SEC
     Route: 042
     Dates: start: 20060915, end: 20060915

REACTIONS (1)
  - BRONCHOSPASM [None]
